FAERS Safety Report 7756955-0 (Version None)
Quarter: 2011Q3

REPORT INFORMATION
  Report Type: 
  Country: None (occurrence: None)
  Receive Date: 20110916
  Receipt Date: 20110907
  Transmission Date: 20111222
  Serious: Yes (Other)
  Sender: FDA-Public Use
  Company Number: FR-JNJFOC-20110810824

PATIENT
  Age: 72 Year
  Sex: Female

DRUGS (7)
  1. ENBREL [Suspect]
     Indication: PSORIATIC ARTHROPATHY
     Route: 065
     Dates: start: 20080101
  2. NSAID [Suspect]
     Route: 065
  3. METHOTREXATE [Suspect]
     Route: 065
     Dates: start: 20100101
  4. ENBREL [Suspect]
     Route: 065
  5. NSAID [Suspect]
     Indication: PRODUCT USED FOR UNKNOWN INDICATION
     Route: 065
     Dates: start: 20090701
  6. INFLIXIMAB, RECOMBINANT [Suspect]
     Indication: PSORIATIC ARTHROPATHY
     Route: 042
     Dates: start: 20040301, end: 20080301
  7. METHOTREXATE [Suspect]
     Indication: PRODUCT USED FOR UNKNOWN INDICATION
     Route: 065

REACTIONS (3)
  - TOXOPLASMOSIS [None]
  - CYTOMEGALOVIRUS INFECTION [None]
  - ADVERSE EVENT [None]
